FAERS Safety Report 6783256-X (Version None)
Quarter: 2010Q2

REPORT INFORMATION
  Report Type: 
  Country: None (occurrence: None)
  Receive Date: 20100622
  Receipt Date: 20100611
  Transmission Date: 20101027
  Serious: Yes (Other)
  Sender: FDA-Public Use
  Company Number: JP-PFIZER INC-2010066624

PATIENT
  Age: 19 Year
  Sex: Male

DRUGS (1)
  1. ZITHROMAC SR [Suspect]
     Indication: UPPER RESPIRATORY TRACT INFLAMMATION
     Dosage: 2 G, SINGLE
     Dates: start: 20100430, end: 20100430

REACTIONS (1)
  - BLOOD CREATINE PHOSPHOKINASE INCREASED [None]
